FAERS Safety Report 24466948 (Version 1)
Quarter: 2024Q4

REPORT INFORMATION
  Report Type: Report from Study
  Country: US (occurrence: US)
  Receive Date: 20241018
  Receipt Date: 20241018
  Transmission Date: 20250115
  Serious: No
  Sender: ROCHE
  Company Number: US-ROCHE-3553061

PATIENT
  Age: 51 Year
  Sex: Male

DRUGS (5)
  1. XOLAIR [Suspect]
     Active Substance: OMALIZUMAB
     Indication: Urticaria
     Route: 058
  2. LISINOPRIL [Concomitant]
     Active Substance: LISINOPRIL
  3. NAPROXEN [Concomitant]
     Active Substance: NAPROXEN
  4. OMEPRAZOLE [Concomitant]
     Active Substance: OMEPRAZOLE
  5. MINOCYCLINE [Concomitant]
     Active Substance: MINOCYCLINE HYDROCHLORIDE

REACTIONS (5)
  - Off label use [Unknown]
  - Skin papilloma [Unknown]
  - Skin papilloma [Unknown]
  - Paraesthesia [Unknown]
  - Eczema [Unknown]
